FAERS Safety Report 8074001-9 (Version None)
Quarter: 2012Q1

REPORT INFORMATION
  Report Type: 
  Country: None (occurrence: None)
  Receive Date: 20120126
  Receipt Date: 20120116
  Transmission Date: 20120608
  Serious: Yes (Other)
  Sender: FDA-Public Use
  Company Number: US-ELI_LILLY_AND_COMPANY-US201201005473

PATIENT
  Sex: Male

DRUGS (1)
  1. EFFIENT [Suspect]

REACTIONS (7)
  - LIVEDO RETICULARIS [None]
  - POLYP [None]
  - CYSTITIS NONINFECTIVE [None]
  - EPIGASTRIC DISCOMFORT [None]
  - RENAL PAPILLARY NECROSIS [None]
  - HAEMATURIA [None]
  - HEADACHE [None]
